FAERS Safety Report 7473210-7 (Version None)
Quarter: 2011Q2

REPORT INFORMATION
  Report Type: 
  Country: None (occurrence: None)
  Receive Date: 20110511
  Receipt Date: 20110504
  Transmission Date: 20111010
  Serious: Yes (Death)
  Sender: FDA-Public Use
  Company Number: A0926842A

PATIENT
  Age: 45 Year
  Sex: Male

DRUGS (5)
  1. GLIMEPIRIDE [Concomitant]
  2. LIPITOR [Concomitant]
  3. GLUCOPHAGE [Concomitant]
  4. VOTRIENT [Suspect]
     Dosage: 800MGD PER DAY
     Route: 048
     Dates: start: 20100527
  5. HYZAAR [Concomitant]

REACTIONS (1)
  - RENAL CANCER [None]
